FAERS Safety Report 9506424 (Version 1)
Quarter: 2013Q1

REPORT INFORMATION
  Report Type: Spontaneous
  Country: US (occurrence: None)
  Receive Date: 20130301
  Receipt Date: 20130301
  Transmission Date: 20140127
  Serious: Yes (Hospitalization, Other)
  Sender: FDA-Public Use
  Company Number: RB-36439-2012

PATIENT
  Age: 71 Year
  Sex: Female

DRUGS (1)
  1. SUBOXONE [Suspect]
     Indication: DRUG DEPENDENCE
     Route: 060
     Dates: start: 2011, end: 2011

REACTIONS (7)
  - Fall [None]
  - Wrist fracture [None]
  - Oedema peripheral [None]
  - Syncope [None]
  - Musculoskeletal pain [None]
  - Pain in extremity [None]
  - Muscle twitching [None]
